FAERS Safety Report 12498886 (Version 1)
Quarter: 2016Q2

REPORT INFORMATION
  Report Type: Spontaneous
  Country: US (occurrence: None)
  Receive Date: 20160624
  Receipt Date: 20160624
  Transmission Date: 20160815
  Serious: Yes (Disabling)
  Sender: FDA-Public Use
  Company Number: None

PATIENT
  Age: 49 Year
  Sex: Female
  Weight: 97.52 kg

DRUGS (4)
  1. PROVAIR [Concomitant]
  2. ESTRADIOL. [Suspect]
     Active Substance: ESTRADIOL
     Indication: MENOPAUSE
     Dosage: 4 PATCH(ES) ONCE WEEKLY APPLIED AS MEDICATED PATCH TO SKIN
     Dates: start: 20151101
  3. ADDERALL [Concomitant]
     Active Substance: AMPHETAMINE ASPARTATE\AMPHETAMINE SULFATE\DEXTROAMPHETAMINE SACCHARATE\DEXTROAMPHETAMINE SULFATE
  4. HORMONE PATCH [Concomitant]

REACTIONS (5)
  - Application site pruritus [None]
  - Application site bruise [None]
  - Chemical injury [None]
  - Application site burn [None]
  - Abdominal pain upper [None]

NARRATIVE: CASE EVENT DATE: 20160510
